FAERS Safety Report 26022690 (Version 2)
Quarter: 2025Q4

REPORT INFORMATION
  Report Type: Spontaneous
  Country: EU (occurrence: EU)
  Receive Date: 20251110
  Receipt Date: 20251118
  Transmission Date: 20260117
  Serious: Yes (Other)
  Sender: GALPHARM INTERNATIONAL
  Company Number: EU-MLMSERVICE-20251023-PI681441-00030-2

PATIENT
  Age: 4 Decade
  Sex: Male

DRUGS (8)
  1. IBUPROFEN [Suspect]
     Active Substance: IBUPROFEN
     Indication: Borderline leprosy
     Dosage: 400 MG, Q12HRS
     Route: 048
  2. IBUPROFEN [Suspect]
     Active Substance: IBUPROFEN
     Dosage: 600 MG, Q12HRS FOR 2 TO 3 DAYS
     Route: 048
  3. PREDNISONE [Concomitant]
     Active Substance: PREDNISONE
     Indication: Acute febrile neutrophilic dermatosis
     Dosage: 27 MONTHS
     Route: 048
  4. PREDNISONE [Concomitant]
     Active Substance: PREDNISONE
     Indication: Borderline leprosy
     Dosage: VARIABLE DOSES RANGING FROM 5 TO 50MG
     Route: 048
  5. CLOFAZIMINE [Concomitant]
     Active Substance: CLOFAZIMINE
     Indication: Borderline leprosy
     Dosage: UNKNOWN, UNKNOWN
     Route: 065
  6. THALIDOMIDE [Concomitant]
     Active Substance: THALIDOMIDE
     Indication: Borderline leprosy
     Dosage: 24 MONTHS
     Route: 065
  7. CLARITHROMYCIN [Concomitant]
     Active Substance: CLARITHROMYCIN
     Indication: Leprosy
     Dosage: UNKONWN, UNKNOWN
     Route: 065
  8. MINOCYCLINE [Concomitant]
     Active Substance: MINOCYCLINE HYDROCHLORIDE
     Indication: Leprosy
     Dosage: UNKNOWN, UNKNOWN
     Route: 065

REACTIONS (1)
  - Dermatitis bullous [Recovered/Resolved]
